FAERS Safety Report 7888812-3 (Version None)
Quarter: 2011Q4

REPORT INFORMATION
  Report Type: 
  Country: None (occurrence: None)
  Receive Date: 20111103
  Receipt Date: 20111031
  Transmission Date: 20120403
  Serious: Yes (Other)
  Sender: FDA-Public Use
  Company Number: US-PFIZER INC-2011127085

PATIENT
  Sex: Female

DRUGS (8)
  1. FOLIC ACID [Concomitant]
     Indication: PERNICIOUS ANAEMIA
     Dosage: UNK
     Dates: start: 19950101
  2. VITAMIN B-12 [Concomitant]
     Indication: PERNICIOUS ANAEMIA
     Dosage: UNK
     Dates: start: 19950101
  3. SPIRIVA [Concomitant]
     Indication: EMPHYSEMA
     Dosage: UNK
     Dates: start: 19980101
  4. CHANTIX [Suspect]
     Indication: SMOKING CESSATION THERAPY
     Dosage: UNK
     Dates: start: 20070401, end: 20080201
  5. CYMBALTA [Concomitant]
     Indication: DEPRESSION
     Dosage: UNK
     Dates: start: 20060101
  6. TRANSENE [Concomitant]
     Indication: DEPRESSION
     Dosage: UNK
     Dates: start: 19920101
  7. CLORAZEPATE DIPOTASSIUM [Concomitant]
     Indication: ANXIETY
     Dosage: UNK
     Dates: start: 19860101
  8. CELEBREX [Concomitant]
     Indication: ARTHRITIS
     Dosage: UNK
     Dates: start: 20050101

REACTIONS (6)
  - ANXIETY [None]
  - WRIST FRACTURE [None]
  - NERVE COMPRESSION [None]
  - AGGRESSION [None]
  - DEPRESSION [None]
  - DIZZINESS [None]
